FAERS Safety Report 14492912 (Version 2)
Quarter: 2018Q3

REPORT INFORMATION
  Report Type: Spontaneous
  Country: US (occurrence: US)
  Receive Date: 20180206
  Receipt Date: 20180709
  Transmission Date: 20181010
  Serious: Yes (Other)
  Sender: FDA-Public Use
  Company Number: US-JNJFOC-20180109366

PATIENT
  Sex: Female

DRUGS (4)
  1. LITHIUM. [Concomitant]
     Active Substance: LITHIUM
     Indication: DRUG THERAPY
     Route: 065
     Dates: start: 20170203
  2. INVEGA SUSTENNA [Suspect]
     Active Substance: PALIPERIDONE PALMITATE
     Indication: SCHIZOAFFECTIVE DISORDER
     Route: 030
     Dates: start: 20170629
  3. PROZAC [Concomitant]
     Active Substance: FLUOXETINE HYDROCHLORIDE
     Indication: AFFECTIVE DISORDER
     Route: 065
     Dates: start: 20170203
  4. BENZOTROPINE [Concomitant]
     Active Substance: BENZTROPINE
     Dosage: FOR ^SE^
     Route: 065
     Dates: start: 20170203

REACTIONS (2)
  - Amenorrhoea [Unknown]
  - Blood prolactin increased [Unknown]
